FAERS Safety Report 19746127 (Version 1)
Quarter: 2021Q3

REPORT INFORMATION
  Report Type: Spontaneous
  Country: JP (occurrence: JP)
  Receive Date: 20210826
  Receipt Date: 20210826
  Transmission Date: 20211014
  Serious: Yes (Other)
  Sender: FDA-Public Use
  Company Number: JP-AMGEN-JPNSP2021130538

PATIENT
  Age: 50 Year

DRUGS (2)
  1. ROMIPLATE [Suspect]
     Active Substance: ROMIPLOSTIM
     Indication: APLASTIC ANAEMIA
     Dosage: UNK (MAXIMUM DOSE)
     Route: 058
  2. ROMIPLATE [Suspect]
     Active Substance: ROMIPLOSTIM
     Dosage: UNK (MAXIMUM DOSE)
     Route: 058

REACTIONS (2)
  - Bone pain [Recovering/Resolving]
  - Pulmonary alveolar haemorrhage [Recovering/Resolving]

NARRATIVE: CASE EVENT DATE: 2020
